FAERS Safety Report 16095036 (Version 1)
Quarter: 2019Q2

REPORT INFORMATION
  Report Type: Spontaneous
  Country: US (occurrence: US)
  Receive Date: 20190320
  Receipt Date: 20190320
  Transmission Date: 20190711
  Serious: Yes (Other)
  Sender: FDA-Public Use
  Company Number: None

PATIENT
  Age: 11 Year
  Sex: Male
  Weight: 40.95 kg

DRUGS (1)
  1. AMOXICILLIN 875MG TABLETS [Suspect]
     Active Substance: AMOXICILLIN
     Indication: SINUSITIS
     Dosage: ?          QUANTITY:1 TABLET(S);?
     Route: 048
     Dates: start: 20190319, end: 20190319

REACTIONS (4)
  - Agitation [None]
  - Behaviour disorder [None]
  - Delusion [None]
  - Anger [None]

NARRATIVE: CASE EVENT DATE: 20190319
